FAERS Safety Report 9886386 (Version 3)
Quarter: 2014Q2

REPORT INFORMATION
  Report Type: Spontaneous
  Country: IT (occurrence: IT)
  Receive Date: 20140210
  Receipt Date: 20140408
  Transmission Date: 20141212
  Serious: Yes (Hospitalization)
  Sender: FDA-Public Use
  Company Number: IT-PFIZER INC-2014036210

PATIENT
  Age: 81 Year
  Sex: Male

DRUGS (6)
  1. CORDARONE [Suspect]
     Indication: ATRIAL FIBRILLATION
     Dosage: 200 MG (1 TABLET), DAILY
     Route: 048
     Dates: start: 20100101
  2. SINTROM [Interacting]
     Indication: ATRIAL FIBRILLATION
     Dosage: 1 DF, AS NEEDED
     Route: 048
     Dates: start: 20030101, end: 20140108
  3. PANTOPRAZOLE [Concomitant]
     Dosage: UNK
  4. ALDACTONE [Concomitant]
     Dosage: UNK
  5. ENAPREN [Concomitant]
     Dosage: UNK
  6. LASIX [Concomitant]
     Dosage: UNK

REACTIONS (3)
  - Drug interaction [Unknown]
  - International normalised ratio increased [Recovering/Resolving]
  - Muscle haemorrhage [Recovering/Resolving]
